FAERS Safety Report 7641682-0 (Version None)
Quarter: 2011Q3

REPORT INFORMATION
  Report Type: 
  Country: None (occurrence: None)
  Receive Date: 20110728
  Receipt Date: 20110721
  Transmission Date: 20111222
  Serious: Yes (Other)
  Sender: FDA-Public Use
  Company Number: JP-GLAXOSMITHKLINE-B0711413A

PATIENT
  Sex: Female

DRUGS (5)
  1. MENEST [Concomitant]
     Dosage: 450MG PER DAY
     Route: 048
     Dates: start: 20091016
  2. REQUIP [Suspect]
     Indication: PRODUCT USED FOR UNKNOWN INDICATION
     Route: 048
     Dates: start: 20110129, end: 20110320
  3. SELEGILINE [Concomitant]
     Dosage: 7.5MG PER DAY
     Route: 048
  4. NAUZELIN [Concomitant]
     Dosage: 30MG PER DAY
     Route: 048
     Dates: start: 20091030
  5. GASMOTIN [Concomitant]
     Dosage: 15MG PER DAY
     Route: 048
     Dates: start: 20100604

REACTIONS (5)
  - ONYCHOLYSIS [None]
  - PHOTOONYCHOLYSIS [None]
  - OEDEMA PERIPHERAL [None]
  - HALLUCINATION, VISUAL [None]
  - ERYTHEMA [None]
